FAERS Safety Report 9625812 (Version 3)
Quarter: 2013Q4

REPORT INFORMATION
  Report Type: Spontaneous
  Country: JP (occurrence: JP)
  Receive Date: 20131016
  Receipt Date: 20131226
  Transmission Date: 20140711
  Serious: Yes (Other)
  Sender: FDA-Public Use
  Company Number: JP-PFIZER INC-2013288098

PATIENT
  Age: 70 Year
  Sex: Female

DRUGS (3)
  1. SUNITINIB MALATE [Suspect]
     Indication: GASTROINTESTINAL STROMAL TUMOUR
     Dosage: 50 MG, CYCLIC (ONCE DAILY FOR 4 WEEKS FOLLOWED BY 2-WEEK REST)
     Route: 048
  2. SUNITINIB MALATE [Suspect]
     Dosage: 37.5 MG, 4 WEEKS ON AND 2 OFF (CYCLE 2)
     Route: 048
  3. SUNITINIB MALATE [Suspect]
     Dosage: 25 MG, 4 WEEKS ON AND 2 OFF (CYCLE 3)
     Route: 048

REACTIONS (4)
  - Adrenal insufficiency [Unknown]
  - Platelet count decreased [Unknown]
  - Neutrophil count decreased [Unknown]
  - Hypothyroidism [Unknown]
